FAERS Safety Report 17174122 (Version 3)
Quarter: 2020Q1

REPORT INFORMATION
  Report Type: Report from Study
  Country: None (occurrence: US)
  Receive Date: 20191219
  Receipt Date: 20200323
  Transmission Date: 20200409
  Serious: Yes (Hospitalization, Other)
  Sender: FDA-Public Use
  Company Number: US-ABBVIE-19K-163-3193978-00

PATIENT
  Age: 63 Year
  Sex: Female
  Weight: 98.06 kg

DRUGS (10)
  1. HUMIRA [Suspect]
     Active Substance: ADALIMUMAB
     Indication: RHEUMATOID ARTHRITIS
     Route: 058
     Dates: start: 2018
  2. VITAMIN D3 [Concomitant]
     Active Substance: CHOLECALCIFEROL
     Indication: PRODUCT USED FOR UNKNOWN INDICATION
  3. VITAMIN C [Concomitant]
     Active Substance: ASCORBIC ACID
     Indication: PRODUCT USED FOR UNKNOWN INDICATION
  4. METOPROLOL. [Concomitant]
     Active Substance: METOPROLOL
     Indication: HYPERTENSION
  5. ASPIRIN. [Concomitant]
     Active Substance: ASPIRIN
     Indication: ANTICOAGULANT THERAPY
  6. HUMIRA [Suspect]
     Active Substance: ADALIMUMAB
     Indication: RHEUMATOID ARTHRITIS
     Dosage: CITRATE FREE
     Route: 058
  7. ZOLOFT [Concomitant]
     Active Substance: SERTRALINE HYDROCHLORIDE
     Indication: ANXIETY
  8. FISH OIL [Concomitant]
     Active Substance: FISH OIL
     Indication: NUTRITIONAL SUPPLEMENTATION
  9. NASATAPP [Concomitant]
     Indication: ALLERGY PROPHYLAXIS
  10. LOSARTAN. [Concomitant]
     Active Substance: LOSARTAN
     Indication: HYPERTENSION

REACTIONS (13)
  - Hypersensitivity [Recovered/Resolved]
  - Loss of consciousness [Unknown]
  - Fall [Recovered/Resolved]
  - Contusion [Recovered/Resolved]
  - Contusion [Unknown]
  - Tension headache [Recovered/Resolved]
  - Vitamin D deficiency [Not Recovered/Not Resolved]
  - Hypertension [Unknown]
  - Hypotension [Unknown]
  - Anxiety [Not Recovered/Not Resolved]
  - Blood calcium decreased [Unknown]
  - Vitamin B12 deficiency [Unknown]
  - Sinus disorder [Unknown]

NARRATIVE: CASE EVENT DATE: 201912
